FAERS Safety Report 5710828-3 (Version None)
Quarter: 2008Q2

REPORT INFORMATION
  Report Type: 
  Country: None (occurrence: None)
  Receive Date: 20080417
  Receipt Date: 20080417
  Transmission Date: 20081010
  Serious: No
  Sender: FDA-Public Use
  Company Number: None

PATIENT

DRUGS (1)
  1. LEVAQUIN [Suspect]
     Indication: BRONCHITIS
     Dosage: ONE DAILY PO
     Route: 048
     Dates: start: 20070703, end: 20070708

REACTIONS (5)
  - DISSOCIATION [None]
  - FEAR [None]
  - HALLUCINATION, AUDITORY [None]
  - INSOMNIA [None]
  - NERVOUSNESS [None]
